FAERS Safety Report 6842542-5 (Version None)
Quarter: 2010Q3

REPORT INFORMATION
  Report Type: 
  Country: None (occurrence: None)
  Receive Date: 20100714
  Receipt Date: 20070731
  Transmission Date: 20110219
  Serious: No
  Sender: FDA-Public Use
  Company Number: US-PFIZER INC-2007064843

PATIENT
  Sex: Female
  Weight: 51.3 kg

DRUGS (2)
  1. CHANTIX [Suspect]
     Dates: start: 20070701, end: 20070701
  2. PAXIL [Concomitant]

REACTIONS (3)
  - FEELING HOT [None]
  - PALPITATIONS [None]
  - POOR QUALITY SLEEP [None]
